FAERS Safety Report 6155849-4 (Version None)
Quarter: 2009Q2

REPORT INFORMATION
  Report Type: 
  Country: None (occurrence: None)
  Receive Date: 20090415
  Receipt Date: 20090409
  Transmission Date: 20091009
  Serious: Yes (Disabling)
  Sender: FDA-Public Use
  Company Number: GB-MERCK-0904GBR00040

PATIENT
  Age: 58 Year
  Sex: Male
  Weight: 108 kg

DRUGS (10)
  1. ZOCOR [Suspect]
     Indication: HYPERLIPIDAEMIA
     Route: 048
  2. EXENATIDE [Suspect]
     Indication: TYPE 2 DIABETES MELLITUS
     Route: 058
     Dates: start: 20080424
  3. AMLODIPINE [Concomitant]
     Route: 065
  4. ASPIRIN [Concomitant]
     Route: 065
  5. GABAPENTIN [Concomitant]
     Route: 065
  6. IRBESARTAN [Concomitant]
     Route: 065
  7. INSULIN GLARGINE [Concomitant]
     Route: 065
  8. METFORMIN [Concomitant]
     Route: 065
  9. INDAPAMIDE [Concomitant]
     Route: 065
  10. PANTOPRAZOLE [Concomitant]
     Route: 065

REACTIONS (3)
  - PAIN IN EXTREMITY [None]
  - TENDERNESS [None]
  - THROMBOSIS [None]
